FAERS Safety Report 8460926-9 (Version None)
Quarter: 2012Q2

REPORT INFORMATION
  Report Type: 
  Country: None (occurrence: None)
  Receive Date: 20120625
  Receipt Date: 20120612
  Transmission Date: 20120825
  Serious: Yes (Hospitalization)
  Sender: FDA-Public Use
  Company Number: US-BIOGENIDEC-2012BI021019

PATIENT
  Age: 41 Year
  Sex: Female

DRUGS (2)
  1. AVONEX [Suspect]
     Indication: MULTIPLE SCLEROSIS
     Route: 030
     Dates: end: 20030101
  2. AVONEX [Suspect]
     Route: 030
     Dates: start: 20030101

REACTIONS (9)
  - OSTEOARTHRITIS [None]
  - FALL [None]
  - SEPSIS [None]
  - WOUND INFECTION [None]
  - PERIPROSTHETIC FRACTURE [None]
  - ARTHRITIS INFECTIVE [None]
  - RENAL FAILURE [None]
  - DEVICE DAMAGE [None]
  - FEMUR FRACTURE [None]
